FAERS Safety Report 11132876 (Version 1)
Quarter: 2015Q2

REPORT INFORMATION
  Report Type: Spontaneous
  Country: US (occurrence: US)
  Receive Date: 20150522
  Receipt Date: 20150522
  Transmission Date: 20150821
  Serious: Yes (Other)
  Sender: FDA-Public Use
  Company Number: US-PFIZER INC-2015172789

PATIENT
  Age: 14 Month
  Sex: Female
  Weight: 8.3 kg

DRUGS (5)
  1. RAPAMUNE [Suspect]
     Active Substance: SIROLIMUS
     Indication: ANGIOSARCOMA
     Dosage: 0.4 MG, 2X/DAY
     Dates: start: 201407
  2. BACTRIM [Concomitant]
     Active Substance: SULFAMETHOXAZOLE\TRIMETHOPRIM
     Dosage: UNK, WEEKLY [ON THE WEEKENDS]
  3. PREVACID [Concomitant]
     Active Substance: LANSOPRAZOLE
     Dosage: UNK, WEEKLY [ON THE WEEKENDS]
  4. RAPAMUNE [Suspect]
     Active Substance: SIROLIMUS
     Dosage: 0.4 MG, 1X/DAY
  5. SULFAMETHOXAZOLE AND TRIMETHOPRIM [Concomitant]
     Active Substance: SULFAMETHOXAZOLE\TRIMETHOPRIM

REACTIONS (4)
  - Expired product administered [Unknown]
  - Product use issue [Unknown]
  - Malaise [Recovering/Resolving]
  - Clostridium difficile infection [Recovering/Resolving]

NARRATIVE: CASE EVENT DATE: 201505
